FAERS Safety Report 8226188 (Version 2)
Quarter: 2012Q4

REPORT INFORMATION
  Report Type: 
  Country: US (occurrence: US)
  Receive Date: 20111103
  Receipt Date: 20121014
  Transmission Date: 20130627
  Serious: Yes (Other)
  Sender: FDA-Public Use
  Company Number: US-US-EMD SERONO, INC.-7092444

PATIENT
  Age: 38 None
  Sex: Female
  Weight: 108 kg

DRUGS (2)
  1. REBIF [Suspect]
     Indication: RELAPSING-REMITTING MULTIPLE SCLEROSIS
     Route: 058
     Dates: start: 201005
  2. REBIF [Suspect]
     Route: 058
     Dates: end: 20120409

REACTIONS (8)
  - Optic neuritis [Unknown]
  - Lyme disease [Unknown]
  - Hyperaesthesia [Unknown]
  - Limb discomfort [Unknown]
  - Multiple sclerosis [Unknown]
  - Injection site pruritus [Not Recovered/Not Resolved]
  - Injection site erythema [Recovering/Resolving]
  - Fatigue [Recovered/Resolved]
